FAERS Safety Report 7248659-8 (Version None)
Quarter: 2011Q1

REPORT INFORMATION
  Report Type: 
  Country: None (occurrence: None)
  Receive Date: 20110128
  Receipt Date: 20110118
  Transmission Date: 20110831
  Serious: Yes (Hospitalization)
  Sender: FDA-Public Use
  Company Number: US-BIOGENIDEC-2010BI040487

PATIENT
  Age: 44 Year
  Sex: Female

DRUGS (1)
  1. TYSABRI [Suspect]
     Indication: MULTIPLE SCLEROSIS
     Route: 042
     Dates: start: 20100510

REACTIONS (7)
  - TRAUMATIC LIVER INJURY [None]
  - RETROGRADE AMNESIA [None]
  - URINARY TRACT INFECTION [None]
  - CONCUSSION [None]
  - STRESS [None]
  - ROAD TRAFFIC ACCIDENT [None]
  - FATIGUE [None]
